FAERS Safety Report 4833190-7 (Version None)
Quarter: 2005Q4

REPORT INFORMATION
  Report Type: 
  Country: None (occurrence: None)
  Receive Date: 20051117
  Receipt Date: 20051025
  Transmission Date: 20060501
  Serious: No
  Sender: FDA-Public Use
  Company Number: DE_051117444

PATIENT
  Age: 62 Year
  Sex: Female

DRUGS (4)
  1. CYMBALTA [Suspect]
     Indication: DEPRESSION
     Dosage: 60 MG/1 DAY
     Dates: start: 20050922
  2. CYMBALTA [Suspect]
     Indication: PAIN
     Dosage: 60 MG/1 DAY
     Dates: start: 20050922
  3. PLACEBO [Suspect]
     Indication: DEPRESSION
     Dates: start: 20050922
  4. PLACEBO [Suspect]
     Indication: PAIN
     Dates: start: 20050922

REACTIONS (3)
  - ALANINE AMINOTRANSFERASE INCREASED [None]
  - ASPARTATE AMINOTRANSFERASE INCREASED [None]
  - CONDITION AGGRAVATED [None]
